FAERS Safety Report 4397099-8 (Version None)
Quarter: 2004Q3

REPORT INFORMATION
  Report Type: 
  Country: None (occurrence: None)
  Receive Date: 20040709
  Receipt Date: 20040628
  Transmission Date: 20050211
  Serious: Yes (Other)
  Sender: FDA-Public Use
  Company Number: FR-2004-027780

PATIENT
  Age: 37 Year
  Sex: Female

DRUGS (3)
  1. MIRENA [Suspect]
     Indication: CONTRACEPTION
     Dosage: 20 UG, CONT, INTRA-UTERINE
     Route: 015
     Dates: start: 20020901
  2. PROZAC [Concomitant]
  3. STRESAM (ETIFOXINE) [Concomitant]

REACTIONS (3)
  - GESTATIONAL DIABETES [None]
  - MIGRATION OF IMPLANT [None]
  - PREGNANCY WITH CONTRACEPTIVE DEVICE [None]
